FAERS Safety Report 4561431-2 (Version None)
Quarter: 2005Q1

REPORT INFORMATION
  Report Type: 
  Country: None (occurrence: None)
  Receive Date: 20050121
  Receipt Date: 20050104
  Transmission Date: 20050727
  Serious: Yes (Death)
  Sender: FDA-Public Use
  Company Number: 205268

PATIENT
  Age: 56 Year
  Sex: Female

DRUGS (15)
  1. AVONEX [Suspect]
     Indication: MULTIPLE SCLEROSIS
     Dosage: 30 UG; QW; IM
     Route: 030
     Dates: start: 19980701
  2. ADVIL COLD AND SINUS (PSEUDOEPHEDRINE HYDROCHLORIDE) [Concomitant]
  3. CORTICOSTEROIDS [Concomitant]
  4. ANTIBIOTICS [Concomitant]
  5. DYAZIDE [Concomitant]
  6. ATENOLOL [Concomitant]
  7. CEFPROZIL [Concomitant]
  8. NAPROXEN [Concomitant]
  9. IBUPROFEN [Concomitant]
  10. BACLOFEN [Concomitant]
  11. TRAMADOL HCL [Concomitant]
  12. TIZANIDINE [Concomitant]
  13. LORTAB [Concomitant]
  14. GABAPENTIN [Concomitant]
  15. FEMHRT [Concomitant]

REACTIONS (7)
  - ARTHROPOD BITE [None]
  - CELLULITIS [None]
  - MULTIPLE SCLEROSIS RELAPSE [None]
  - NASOPHARYNGITIS [None]
  - NAUSEA [None]
  - URINARY TRACT INFECTION [None]
  - VOMITING [None]
